FAERS Safety Report 14110259 (Version 1)
Quarter: 2017Q4

REPORT INFORMATION
  Report Type: Spontaneous
  Country: US (occurrence: US)
  Receive Date: 20171020
  Receipt Date: 20171020
  Transmission Date: 20180321
  Serious: Yes (Other)
  Sender: FDA-Public Use
  Company Number: US-WEST-WARD PHARMACEUTICALS CORP.-US-H14001-17-03976

PATIENT
  Age: 27 Year
  Sex: Female

DRUGS (19)
  1. MORPHINE [Concomitant]
     Active Substance: MORPHINE
     Indication: PRODUCT USED FOR UNKNOWN INDICATION
     Route: 065
  2. DEXMEDETOMIDINE. [Concomitant]
     Active Substance: DEXMEDETOMIDINE
     Dosage: UP TO 0.5 MG/KG/H
     Route: 042
  3. HYPERTONIC SALINE [Concomitant]
     Active Substance: SODIUM CHLORIDE
     Indication: INTRACRANIAL PRESSURE INCREASED
     Route: 065
  4. KETAMINE [Concomitant]
     Active Substance: KETAMINE
     Dosage: 250 MG/H (5 MG/KG/H)
     Route: 065
  5. PROPOFOL. [Suspect]
     Active Substance: PROPOFOL
     Dosage: 80 MG/KG/MIN
     Route: 065
  6. MIDAZOLAM [Suspect]
     Active Substance: MIDAZOLAM HYDROCHLORIDE
     Indication: SEDATION
     Dosage: 10 MG/H
     Route: 065
  7. PROPOFOL. [Suspect]
     Active Substance: PROPOFOL
     Dosage: 30 MG/KG/MIN
     Route: 042
  8. HALOPERIDOL. [Concomitant]
     Active Substance: HALOPERIDOL
     Indication: AGITATION
     Dosage: 4 ADMINISTERED DOSES
     Route: 040
  9. CONTRACEPTIVE [Concomitant]
     Active Substance: UNSPECIFIED INGREDIENT
     Indication: PRODUCT USED FOR UNKNOWN INDICATION
     Route: 048
  10. KETAMINE [Concomitant]
     Active Substance: KETAMINE
     Indication: SEDATION
     Dosage: 1 MG/KG/H (50 MG/H)
     Route: 065
  11. LEVETIRACETAM. [Concomitant]
     Active Substance: LEVETIRACETAM
     Indication: PROPHYLAXIS
     Route: 065
  12. MANNITOL. [Concomitant]
     Active Substance: MANNITOL
     Indication: INTRACRANIAL PRESSURE INCREASED
     Route: 065
  13. DEXMEDETOMIDINE. [Concomitant]
     Active Substance: DEXMEDETOMIDINE
     Indication: SEDATION
     Dosage: UP TO 1.2 MG/KG/H
     Route: 042
  14. FENTANYL. [Suspect]
     Active Substance: FENTANYL
     Indication: SEDATION
     Dosage: 200 MICROG/H
     Route: 065
  15. FENTANYL. [Suspect]
     Active Substance: FENTANYL
     Route: 065
  16. PROPOFOL. [Suspect]
     Active Substance: PROPOFOL
     Indication: SEDATION
     Dosage: 40 MG/KG/MIN
     Route: 042
  17. PHENYLEPHRINE [Concomitant]
     Active Substance: PHENYLEPHRINE\PHENYLEPHRINE HYDROCHLORIDE
     Indication: HYPOTENSION
     Dosage: 20 MG/MIN
     Route: 041
  18. HALOPERIDOL. [Concomitant]
     Active Substance: HALOPERIDOL
     Route: 042
  19. LACOSAMIDE. [Concomitant]
     Active Substance: LACOSAMIDE
     Indication: PROPHYLAXIS
     Route: 042

REACTIONS (2)
  - Respiratory depression [Recovered/Resolved]
  - Delirium [Recovered/Resolved]
